FAERS Safety Report 7146263-3 (Version None)
Quarter: 2010Q4

REPORT INFORMATION
  Report Type: 
  Country: None (occurrence: None)
  Receive Date: 20101208
  Receipt Date: 20101129
  Transmission Date: 20110411
  Serious: Yes (Death)
  Sender: FDA-Public Use
  Company Number: US-ACTELION-A-US2010-40753

PATIENT
  Sex: Female

DRUGS (3)
  1. ILOPROST INHALATION SOLUTION 20UG US [Suspect]
     Indication: PULMONARY ARTERIAL HYPERTENSION
     Dosage: 20 ?G, UNK
     Route: 055
     Dates: start: 20090615, end: 20100804
  2. WARFARIN SODIUM [Concomitant]
  3. OXYGEN [Concomitant]

REACTIONS (3)
  - DEATH [None]
  - EPISTAXIS [None]
  - HEADACHE [None]
